FAERS Safety Report 5304430-5 (Version None)
Quarter: 2007Q2

REPORT INFORMATION
  Report Type: 
  Country: None (occurrence: None)
  Receive Date: 20070423
  Receipt Date: 20070419
  Transmission Date: 20071010
  Serious: Yes (Other)
  Sender: FDA-Public Use
  Company Number: JP-BRISTOL-MYERS SQUIBB COMPANY-13750344

PATIENT
  Age: 60 Year
  Sex: Male

DRUGS (6)
  1. CISPLATIN [Suspect]
     Indication: ADENOCARCINOMA
     Dosage: DOSING ON DAYS 1-5, 8-12, 15-19, AND 22-26 PER CYCLE
  2. CYCLOPHOSPHAMIDE [Suspect]
     Indication: ADENOCARCINOMA
  3. DOXORUBICIN HCL [Suspect]
     Indication: ADENOCARCINOMA
  4. VINCRISTINE [Suspect]
     Indication: ADENOCARCINOMA
  5. PREDNISONE TAB [Suspect]
     Indication: ADENOCARCINOMA
     Dosage: 75 MG/DAY ON DAYS 1-5 EACH CYCLE
  6. FLUOROURACIL [Suspect]
     Dosage: DOSING ON DAYS 1-28 PER CYCLE

REACTIONS (1)
  - PNEUMONITIS [None]
